FAERS Safety Report 9434732 (Version 3)
Quarter: 2014Q2

REPORT INFORMATION
  Report Type: Report from Study
  Country: JP (occurrence: JP)
  Receive Date: 20130801
  Receipt Date: 20140613
  Transmission Date: 20141212
  Serious: Yes (Hospitalization)
  Sender: FDA-Public Use
  Company Number: JP-PFIZER INC-2013218706

PATIENT
  Age: 51 Year
  Sex: Male

DRUGS (33)
  1. MYCOBUTIN [Suspect]
     Indication: MYCOBACTERIUM AVIUM COMPLEX INFECTION
     Dosage: 150 MG, 3X/WEEK
     Route: 048
     Dates: start: 20110305, end: 20111227
  2. ZITHROMAC [Suspect]
     Indication: OPPORTUNISTIC INFECTION PROPHYLAXIS
     Dosage: 1200 MG, WEEKLY
     Route: 048
     Dates: start: 20110107, end: 20110304
  3. ZITHROMAC [Suspect]
     Indication: MYCOBACTERIUM AVIUM COMPLEX INFECTION
     Dosage: 600 MG, DAILY
     Route: 048
     Dates: start: 20110305, end: 20111227
  4. ZITHROMAC [Suspect]
     Dosage: 2 TABLETS OF 250 MG, ONCE PER DAY
     Route: 048
     Dates: start: 20111228, end: 20130123
  5. VALIXA [Suspect]
     Indication: CYTOMEGALOVIRUS INFECTION
     Dosage: 900 MG, 2X/DAY
     Dates: start: 20110109, end: 20110218
  6. VALIXA [Suspect]
     Dosage: 450 MG, 2X/DAY
     Dates: start: 20110219, end: 20110726
  7. VALIXA [Suspect]
     Dosage: 450 MG, 1X/DAY
     Dates: start: 20110727, end: 20110914
  8. VALIXA [Suspect]
     Dosage: 900 MG, 2X/DAY
     Dates: start: 20110929, end: 20111004
  9. VALIXA [Suspect]
     Dosage: 450 MG, 2X/DAY
     Dates: start: 20111019, end: 20111125
  10. VALIXA [Suspect]
     Dosage: 450 MG, 2X/DAY
     Dates: start: 20111209, end: 20111228
  11. VALIXA [Suspect]
     Dosage: 450 MG, 2X/DAY
     Dates: start: 20120118, end: 20120222
  12. BAKTAR [Suspect]
     Indication: INFECTION PROPHYLAXIS
     Dosage: 1 DF, 2X/DAY
     Dates: start: 20110107, end: 20110120
  13. BAKTAR [Suspect]
     Dosage: 1 DF, 1X/DAY
     Dates: start: 20110121, end: 20130227
  14. ESANBUTOL [Suspect]
     Indication: MYCOBACTERIUM AVIUM COMPLEX INFECTION
     Dosage: 625 MG, DAILY
     Dates: start: 20110305, end: 20111227
  15. ESANBUTOL [Suspect]
     Dosage: 500 MG, 1X/DAY
     Dates: start: 20111228, end: 20130123
  16. NORVIR [Concomitant]
     Indication: HIV INFECTION
     Dosage: 100 MG, DAILY
     Dates: start: 20110121, end: 20130331
  17. TRUVADA [Concomitant]
     Indication: HIV INFECTION
     Dosage: 1 TABLET, DAILY
     Dates: start: 20110121, end: 20120110
  18. PREZISTANAIVE [Concomitant]
     Indication: HIV INFECTION
     Dosage: 2 TABLETS OF 400 MG, ONCE PER DAY
     Dates: start: 20110121, end: 20130331
  19. SAWACILLIN [Concomitant]
     Indication: SYPHILIS
     Dosage: 1000 MG, 3X/DAY
     Dates: start: 20110107, end: 20110203
  20. SAWACILLIN [Concomitant]
     Indication: INFECTION
     Dosage: 1000 MG, 3X/DAY
     Dates: start: 20110205, end: 20110215
  21. RISUMIC [Concomitant]
     Indication: HYPOTENSION
     Dosage: 10 MG, 2X/DAY
     Dates: start: 20110108, end: 20120127
  22. MAGLAX [Concomitant]
     Indication: CONSTIPATION
     Dosage: 330 MG, 3X/DAY
     Dates: start: 20110110, end: 20110117
  23. CEPHADOL [Concomitant]
     Indication: DIZZINESS
     Dosage: 25 MG, 3X/DAY
     Dates: start: 20110107, end: 20120128
  24. VFEND [Concomitant]
     Indication: OESOPHAGEAL CANDIDIASIS
     Dosage: 100 MG, 2X/DAY
     Dates: start: 20110114, end: 20110119
  25. TALION [Concomitant]
     Indication: SEBORRHOEIC DERMATITIS
     Dosage: 10 MG, 2X/DAY
     Dates: start: 20110107, end: 20110218
  26. FLUCONAZOLE [Concomitant]
     Indication: OESOPHAGEAL CANDIDIASIS
     Dosage: 100 MG, 1X/DAY
     Dates: start: 20110120, end: 20110224
  27. ENTERONON R [Concomitant]
     Indication: DIARRHOEA
     Dosage: 1 G, 3X/DAY
     Dates: start: 20110120, end: 20110218
  28. OMEPTOROL [Concomitant]
     Indication: NAUSEA
     Dosage: 20 MG, 1X/DAY
     Dates: start: 20110122, end: 20120128
  29. LOPEMIN [Concomitant]
     Indication: DIARRHOEA
     Dosage: 1 MG, 2X/DAY
     Dates: start: 20110122, end: 20110223
  30. MYONAL [Concomitant]
     Indication: BACK PAIN
     Dosage: 50 MG, 3X/DAY
     Dates: start: 20110126, end: 20110223
  31. LOXONIN [Concomitant]
     Indication: BACK PAIN
     Dosage: 60 MG, 3X/DAY
     Dates: start: 20110126, end: 20110323
  32. TANNALBIN [Concomitant]
     Indication: DIARRHOEA
     Dosage: 1 G, 3X/DAY
     Dates: start: 20110129, end: 20110220
  33. NAUZELIN [Concomitant]
     Indication: PROPHYLAXIS
     Dosage: 10 MG, 3X/DAY
     Route: 048
     Dates: start: 20110206, end: 20111114

REACTIONS (5)
  - Pancytopenia [Recovering/Resolving]
  - Lymphadenitis [Recovering/Resolving]
  - Mycobacterium avium complex infection [Recovering/Resolving]
  - Diarrhoea [Recovering/Resolving]
  - Nausea [Recovering/Resolving]
